FAERS Safety Report 19026517 (Version 1)
Quarter: 2021Q1

REPORT INFORMATION
  Report Type: Spontaneous
  Country: JP (occurrence: JP)
  Receive Date: 20210318
  Receipt Date: 20210318
  Transmission Date: 20210420
  Serious: Yes (Other)
  Sender: FDA-Public Use
  Company Number: JP-ELI_LILLY_AND_COMPANY-JP201806013870

PATIENT
  Age: 78 Year
  Sex: Male
  Weight: 66 kg

DRUGS (12)
  1. DULOXETINE HYDROCHLORIDE. [Suspect]
     Active Substance: DULOXETINE HYDROCHLORIDE
     Dosage: 30 MG, DAILY
     Route: 048
     Dates: start: 20171227, end: 20180530
  2. TRAMCET [Concomitant]
     Active Substance: ACETAMINOPHEN\TRAMADOL
     Indication: OSTEOARTHRITIS
  3. GLIBENCLAMIDE [Concomitant]
     Active Substance: GLYBURIDE
     Indication: DIABETES MELLITUS
     Dosage: 1.25 MG, BID
     Route: 048
     Dates: start: 20150514
  4. CIBENOL [Concomitant]
     Active Substance: CIFENLINE
     Indication: INSOMNIA
     Dosage: 50 MG, BID
     Route: 048
     Dates: start: 2008
  5. DULOXETINE HYDROCHLORIDE. [Suspect]
     Active Substance: DULOXETINE HYDROCHLORIDE
     Indication: OSTEOARTHRITIS
     Dosage: 20 MG, DAILY
     Route: 048
     Dates: start: 20161222, end: 20170118
  6. TRAMCET [Concomitant]
     Active Substance: ACETAMINOPHEN\TRAMADOL
     Indication: LUMBAR SPINAL STENOSIS
     Dosage: 1 DF, BID
     Route: 048
     Dates: start: 20150305, end: 20180530
  7. ONEDURO [Concomitant]
     Active Substance: FENTANYL
     Indication: LUMBAR SPINAL STENOSIS
     Dosage: 1 DF, DAILY
     Route: 062
     Dates: start: 20170726
  8. ONEDURO [Concomitant]
     Active Substance: FENTANYL
     Indication: OSTEOARTHRITIS
  9. OLMETEC [Concomitant]
     Active Substance: OLMESARTAN MEDOXOMIL
     Indication: HYPERTENSION
     Dosage: 70 MG, DAILY
     Route: 048
     Dates: start: 2008
  10. ACTOS [Concomitant]
     Active Substance: PIOGLITAZONE HYDROCHLORIDE
     Indication: DIABETES MELLITUS
     Dosage: 15 MG, BID
     Route: 048
     Dates: start: 20150514
  11. AMLODIPINE [Concomitant]
     Active Substance: AMLODIPINE BESYLATE
     Indication: HYPERTENSION
     Dosage: 5 MG, DAILY
     Route: 048
     Dates: start: 2008
  12. DULOXETINE HYDROCHLORIDE. [Suspect]
     Active Substance: DULOXETINE HYDROCHLORIDE
     Indication: BACK PAIN
     Dosage: 20 MG, BID
     Route: 048
     Dates: start: 20170119, end: 20171226

REACTIONS (2)
  - Renal impairment [Recovering/Resolving]
  - Off label use [Recovered/Resolved]

NARRATIVE: CASE EVENT DATE: 20161222
